FAERS Safety Report 21734579 (Version 1)
Quarter: 2022Q4

REPORT INFORMATION
  Report Type: Spontaneous
  Country: US (occurrence: US)
  Receive Date: 20221215
  Receipt Date: 20221215
  Transmission Date: 20230113
  Serious: Yes (Death, Other)
  Sender: FDA-Public Use
  Company Number: US-JNJFOC-20221217181

PATIENT

DRUGS (3)
  1. IMBRUVICA [Suspect]
     Active Substance: IBRUTINIB
     Indication: Hodgkin^s disease recurrent
     Dosage: LEAD IN CO-HORT
     Route: 048
  2. IMBRUVICA [Suspect]
     Active Substance: IBRUTINIB
     Indication: Hodgkin^s disease recurrent
     Route: 048
  3. BRENTUXIMAB VEDOTIN [Suspect]
     Active Substance: BRENTUXIMAB VEDOTIN
     Indication: Hodgkin^s disease recurrent
     Route: 042

REACTIONS (17)
  - Sepsis [Fatal]
  - Rash [Unknown]
  - Diarrhoea [Unknown]
  - Adverse drug reaction [Unknown]
  - Headache [Unknown]
  - Haematotoxicity [Unknown]
  - Alanine aminotransferase increased [Unknown]
  - Vomiting [Unknown]
  - Off label use [Unknown]
  - Hypertension [Unknown]
  - Fatigue [Unknown]
  - Nausea [Unknown]
  - Pyrexia [Unknown]
  - Abdominal pain [Unknown]
  - Anaemia [Unknown]
  - Thrombocytopenia [Unknown]
  - Neuropathy peripheral [Unknown]
